FAERS Safety Report 8958610 (Version 1)
Quarter: 2012Q4

REPORT INFORMATION
  Report Type: Spontaneous
  Country: US (occurrence: None)
  Receive Date: 20121203
  Receipt Date: 20121203
  Transmission Date: 20130627
  Serious: Yes (Hospitalization)
  Sender: FDA-Public Use
  Company Number: 201211048

PATIENT
  Sex: Male

DRUGS (1)
  1. TESTIM [Suspect]

REACTIONS (4)
  - Thrombosis [None]
  - Alopecia [None]
  - Libido decreased [None]
  - Drug ineffective [None]
